FAERS Safety Report 18850866 (Version 6)
Quarter: 2022Q1

REPORT INFORMATION
  Report Type: Report from Study
  Country: FR (occurrence: FR)
  Receive Date: 20210204
  Receipt Date: 20220324
  Transmission Date: 20220423
  Serious: Yes (Hospitalization, Other)
  Sender: FDA-Public Use
  Company Number: FR-BRISTOL-MYERS SQUIBB COMPANY-BMS-2020-090812

PATIENT
  Age: 75 Year
  Sex: Female
  Weight: 65 kg

DRUGS (19)
  1. IPILIMUMAB [Suspect]
     Active Substance: IPILIMUMAB
     Indication: Colorectal cancer metastatic
     Route: 042
     Dates: start: 20200730, end: 20201020
  2. OXALIPLATIN [Suspect]
     Active Substance: OXALIPLATIN
     Indication: Colorectal cancer metastatic
     Route: 042
     Dates: start: 20200302, end: 20200608
  3. LEUCOVORIN [Suspect]
     Active Substance: LEUCOVORIN
     Indication: Colorectal cancer metastatic
     Route: 042
     Dates: start: 20200302, end: 20200707
  4. FLUOROURACIL [Suspect]
     Active Substance: FLUOROURACIL
     Indication: Colorectal cancer metastatic
     Route: 040
     Dates: start: 20200302, end: 20200709
  5. NIVOLUMAB [Suspect]
     Active Substance: NIVOLUMAB
     Indication: Colorectal cancer metastatic
     Route: 042
     Dates: start: 20200730, end: 20201020
  6. INNOHEP [Concomitant]
     Active Substance: TINZAPARIN SODIUM
     Indication: Product used for unknown indication
     Dosage: 1 DOSAGE FORM : 14000 UNIT NOS
     Route: 058
     Dates: start: 20200217
  7. DOLIPRANE [Concomitant]
     Active Substance: ACETAMINOPHEN
     Indication: Product used for unknown indication
     Dosage: 1 GRAM
     Route: 048
     Dates: start: 20200331
  8. PHLOROGLUCINOL [Concomitant]
     Active Substance: PHLOROGLUCINOL
     Indication: Product used for unknown indication
     Dosage: 80 MILLIGRAM
     Route: 048
     Dates: start: 20200331
  9. TRAMADOL [Concomitant]
     Active Substance: TRAMADOL
     Indication: Product used for unknown indication
     Dosage: 100 MILLIGRAM
     Route: 048
     Dates: start: 20200414
  10. PREDNISOLONE [Concomitant]
     Active Substance: PREDNISOLONE
     Indication: Product used for unknown indication
     Dosage: 20 MILLIGRAM
     Route: 048
     Dates: start: 20200416
  11. PERFALGAN [Concomitant]
     Active Substance: ACETAMINOPHEN
     Indication: Product used for unknown indication
     Dosage: 1 GRAM
     Route: 048
     Dates: start: 20201020
  12. IMODIUM [Concomitant]
     Active Substance: LOPERAMIDE HYDROCHLORIDE
     Indication: Product used for unknown indication
     Dosage: 6 MILLIGRAM
     Route: 048
     Dates: start: 20200302
  13. MAGNE B6 [Concomitant]
     Active Substance: MAGNESIUM\PYRIDOXINE
     Indication: Product used for unknown indication
     Dosage: 1 DOSAGE FORM=1 UNIT NOS
     Route: 048
     Dates: start: 20200316
  14. TRIMEBUTINE [Concomitant]
     Active Substance: TRIMEBUTINE
     Indication: Product used for unknown indication
     Dosage: 1 DOSAGE FORM: 1 UNITS NOS
     Route: 048
     Dates: start: 20200812
  15. SKENAN [Concomitant]
     Active Substance: MORPHINE SULFATE
     Indication: Product used for unknown indication
     Dosage: 20 MILLIGRAM
     Route: 048
     Dates: start: 20200827
  16. CALCIUM PHOSPHATE, DIBASIC, ANHYDROUS\MAGNESIUM GLYCEROPHOSPHATE\PHOSP [Concomitant]
     Active Substance: CALCIUM PHOSPHATE, DIBASIC, ANHYDROUS\MAGNESIUM GLYCEROPHOSPHATE\PHOSPHORIC ACID\SODIUM PHOSPHATE, D
     Indication: Product used for unknown indication
     Dosage: 1 DOSAGE FORM: 1 UNITS NOS
     Route: 048
     Dates: start: 20200316
  17. POTASSIUM CHLORIDE [Concomitant]
     Active Substance: POTASSIUM CHLORIDE
     Indication: Product used for unknown indication
     Dosage: 1 DOSAGE FORM: 1 UNIT NOS
     Route: 048
     Dates: start: 20200316
  18. POLARAMINE [Concomitant]
     Active Substance: DEXCHLORPHENIRAMINE MALEATE
     Indication: Product used for unknown indication
     Dosage: 5 MILLIGRAM
     Route: 042
     Dates: start: 20200330
  19. FERINJECT [Concomitant]
     Active Substance: FERRIC CARBOXYMALTOSE
     Indication: Product used for unknown indication
     Dosage: 1 GRAM
     Route: 058
     Dates: start: 20200330

REACTIONS (2)
  - Sepsis [Recovered/Resolved]
  - Colitis [Recovered/Resolved]

NARRATIVE: CASE EVENT DATE: 20201028
